FAERS Safety Report 25142328 (Version 1)
Quarter: 2025Q1

REPORT INFORMATION
  Report Type: Report from Study
  Country: US (occurrence: US)
  Receive Date: 20250331
  Receipt Date: 20250331
  Transmission Date: 20250409
  Serious: Yes (Other)
  Sender: ROCHE
  Company Number: US-ROCHE-10000241644

PATIENT
  Age: 69 Year
  Sex: Female

DRUGS (3)
  1. XOLAIR PFS [Suspect]
     Active Substance: OMALIZUMAB
     Indication: Urticaria
     Route: 058
  2. XOLAIR PFS [Suspect]
     Active Substance: OMALIZUMAB
     Indication: Hereditary angioedema
  3. XOLAIR PFS [Suspect]
     Active Substance: OMALIZUMAB
     Indication: Chronic spontaneous urticaria

REACTIONS (3)
  - Cataract [Unknown]
  - Wrong technique in device usage process [Unknown]
  - Product quality issue [Unknown]
